FAERS Safety Report 17096576 (Version 1)
Quarter: 2019Q4

REPORT INFORMATION
  Report Type: Report from Study
  Country: US (occurrence: US)
  Receive Date: 20191202
  Receipt Date: 20191202
  Transmission Date: 20200122
  Serious: Yes (Other)
  Sender: FDA-Public Use
  Company Number: US-AMGEN-USASL2019083164

PATIENT
  Age: 65 Year
  Sex: Female

DRUGS (1)
  1. ENBREL [Suspect]
     Active Substance: ETANERCEPT
     Indication: RHEUMATOID ARTHRITIS
     Dosage: 50 MILLIGRAM, QWK
     Route: 065

REACTIONS (6)
  - Systemic lupus erythematosus [Unknown]
  - Nausea [Unknown]
  - Injection site reaction [Unknown]
  - Therapeutic product effect incomplete [Unknown]
  - Nasal congestion [Not Recovered/Not Resolved]
  - Upper-airway cough syndrome [Unknown]
